FAERS Safety Report 7388623-1 (Version None)
Quarter: 2011Q2

REPORT INFORMATION
  Report Type: 
  Country: None (occurrence: None)
  Receive Date: 20110401
  Receipt Date: 20110323
  Transmission Date: 20111010
  Serious: Yes (Death)
  Sender: FDA-Public Use
  Company Number: FR-NOVOPROD-324307

PATIENT
  Age: 27 Year
  Sex: Male
  Weight: 93 kg

DRUGS (4)
  1. MINIRIN                            /00361901/ [Concomitant]
     Indication: DIABETES INSIPIDUS
     Dosage: 0.75/PER OS
     Route: 048
     Dates: start: 19930101
  2. NORDITROPIN [Suspect]
     Indication: GROWTH HORMONE DEFICIENCY
     Dosage: UNK
     Route: 058
     Dates: start: 19930101, end: 19940101
  3. NORDITROPIN [Suspect]
     Indication: GROWTH HORMONE DEFICIENCY
     Dosage: UNK
     Route: 058
     Dates: start: 19980201, end: 20010301
  4. NORDITROPIN [Suspect]
     Dosage: 0.5 MG, QD
     Route: 058
     Dates: start: 20050701, end: 20071201

REACTIONS (1)
  - ACCIDENTAL DEATH [None]
